FAERS Safety Report 14613544 (Version 1)
Quarter: 2018Q1

REPORT INFORMATION
  Report Type: Spontaneous
  Country: CO (occurrence: CO)
  Receive Date: 20180308
  Receipt Date: 20180308
  Transmission Date: 20180509
  Serious: Yes (Life-Threatening, Hospitalization, Other)
  Sender: FDA-Public Use
  Company Number: CO-MYLANLABS-2018M1014295

PATIENT
  Age: 34 Year
  Sex: Female

DRUGS (3)
  1. LITHIUM. [Suspect]
     Active Substance: LITHIUM
     Dosage: 600 MG/DAY
     Route: 065
  2. LITHIUM. [Suspect]
     Active Substance: LITHIUM
     Indication: BIPOLAR DISORDER
     Dosage: IRREGULARLY TAKING 900 MG/DAY
     Route: 065
  3. ARIPIPRAZOLE. [Suspect]
     Active Substance: ARIPIPRAZOLE
     Indication: BIPOLAR DISORDER
     Dosage: IRREGULARLY TAKING 15 MG/DAY
     Route: 065

REACTIONS (3)
  - Cardio-respiratory arrest [Recovered/Resolved]
  - Electrocardiogram QT prolonged [Recovered/Resolved]
  - Ventricular tachycardia [Recovering/Resolving]
